FAERS Safety Report 10892165 (Version 2)
Quarter: 2022Q2

REPORT INFORMATION
  Report Type: Report from Study
  Country: JP (occurrence: JP)
  Receive Date: 20150306
  Receipt Date: 20220504
  Transmission Date: 20220721
  Serious: Yes (Death, Other)
  Sender: FDA-Public Use
  Company Number: JP-PFIZER INC-2015079540

PATIENT

DRUGS (1)
  1. IRINOTECAN HYDROCHLORIDE [Suspect]
     Active Substance: IRINOTECAN HYDROCHLORIDE
     Indication: Gastric cancer
     Dosage: 150 MG/M2, CYCLIC (ON DAYS 1 AND 15, EVERY 4 WEEKS)
     Route: 042

REACTIONS (2)
  - Renal failure [Fatal]
  - Ascites [Fatal]
